FAERS Safety Report 7612843-1 (Version None)
Quarter: 2011Q3

REPORT INFORMATION
  Report Type: 
  Country: None (occurrence: None)
  Receive Date: 20110712
  Receipt Date: 20110523
  Transmission Date: 20111222
  Serious: Yes (Other)
  Sender: FDA-Public Use
  Company Number: 026946

PATIENT
  Sex: Female
  Weight: 64.4 kg

DRUGS (4)
  1. CLONAZEPAM [Concomitant]
  2. HYDROCODONE [Concomitant]
  3. KEPPRA [Suspect]
     Dosage: 750 MG
  4. KEPPRA [Suspect]
     Indication: EPILEPSY
     Dosage: 250 MG TAKES IN MORNING AND EVENING REGULARLY, TITRATING DOSE TAKES IN MORNING AND EVENING REGULARLY
     Dates: end: 20110211

REACTIONS (3)
  - CONVULSION [None]
  - HALLUCINATION, AUDITORY [None]
  - DRUG INEFFECTIVE [None]
